FAERS Safety Report 7505293-X (Version None)
Quarter: 2011Q2

REPORT INFORMATION
  Report Type: 
  Country: None (occurrence: None)
  Receive Date: 20110526
  Receipt Date: 20110512
  Transmission Date: 20111010
  Serious: Yes (Other)
  Sender: FDA-Public Use
  Company Number: US-JNJCP-30000054227

PATIENT
  Age: 41 Year
  Sex: Female
  Weight: 68 kg

DRUGS (3)
  1. RETINOL [Suspect]
     Dosage: HALF PEA SIZE AMOUNT, ONCE ONLY
     Route: 061
     Dates: start: 20110508, end: 20110508
  2. RETINOL [Suspect]
     Dosage: PEA SIZE AMOUNT, ONCE DAILY
     Route: 061
     Dates: start: 20110508, end: 20110508
  3. RETINOL [Suspect]
     Dosage: DIME SIZE AMOUNT, ONCE ONLY
     Route: 061
     Dates: start: 20110508, end: 20110508

REACTIONS (3)
  - HYPERSENSITIVITY [None]
  - URTICARIA [None]
  - PRURITUS [None]
